FAERS Safety Report 5887758-X (Version None)
Quarter: 2008Q3

REPORT INFORMATION
  Report Type: 
  Country: None (occurrence: None)
  Receive Date: 20080918
  Receipt Date: 20080911
  Transmission Date: 20090109
  Serious: Yes (Congenital Anomaly, Other)
  Sender: FDA-Public Use
  Company Number: GB-BAYER-200825969GPV

PATIENT
  Sex: Female

DRUGS (5)
  1. ACETYL SALICYLIC ACID COMPOUND TAB [Suspect]
     Indication: DRUG USE FOR UNKNOWN INDICATION
  2. HEPARIN [Suspect]
     Indication: DRUG USE FOR UNKNOWN INDICATION
  3. CARBAMAZEPINE [Suspect]
     Indication: DRUG USE FOR UNKNOWN INDICATION
     Route: 065
  4. ACETAZOLAMIDE [Suspect]
     Indication: DRUG USE FOR UNKNOWN INDICATION
     Route: 065
  5. LAMOTRIGINE [Suspect]
     Indication: DRUG USE FOR UNKNOWN INDICATION
     Route: 065

REACTIONS (7)
  - ABORTION SPONTANEOUS [None]
  - CARDIAC ANEURYSM [None]
  - HAEMORRHAGE [None]
  - INTRA-UTERINE DEATH [None]
  - PERICARDIAL HAEMORRHAGE [None]
  - POSTPARTUM HAEMORRHAGE [None]
  - STILLBIRTH [None]
